FAERS Safety Report 8831139 (Version 1)
Quarter: 2012Q4

REPORT INFORMATION
  Report Type: Report from Study
  Country: US (occurrence: US)
  Receive Date: 20121008
  Receipt Date: 20121008
  Transmission Date: 20130627
  Serious: Yes (Hospitalization)
  Sender: FDA-Public Use
  Company Number: US-ASTELLAS-2012US009803

PATIENT
  Age: 80 Year
  Sex: Male
  Weight: 77 kg

DRUGS (2)
  1. ERLOTINIB TABLET [Suspect]
     Indication: NON-SMALL CELL LUNG CANCER
     Dosage: 150 mg, UID/QD
     Route: 048
     Dates: start: 20120828
  2. PRILOSEC                           /00661201/ [Concomitant]
     Indication: PRODUCT USED FOR UNKNOWN INDICATION
     Dosage: UNK
     Route: 065

REACTIONS (4)
  - Pleural effusion [Recovered/Resolved]
  - Dry skin [Not Recovered/Not Resolved]
  - Diarrhoea [Recovering/Resolving]
  - Rash [Recovering/Resolving]
